FAERS Safety Report 4398867-9 (Version None)
Quarter: 2004Q3

REPORT INFORMATION
  Report Type: 
  Country: None (occurrence: None)
  Receive Date: 20040712
  Receipt Date: 20040629
  Transmission Date: 20050211
  Serious: Yes (Hospitalization)
  Sender: FDA-Public Use
  Company Number: RB-791-2004

PATIENT

DRUGS (1)
  1. SUBOXONE [Suspect]
     Indication: DRUG DEPENDENCE
     Dosage: UNK
     Route: 065

REACTIONS (4)
  - HAEMATEMESIS [None]
  - HICCUPS [None]
  - OESOPHAGEAL HAEMORRHAGE [None]
  - OESOPHAGEAL RUPTURE [None]
